FAERS Safety Report 9443298 (Version 1)
Quarter: 2013Q3

REPORT INFORMATION
  Report Type: Spontaneous
  Country: US (occurrence: US)
  Receive Date: 20130806
  Receipt Date: 20130806
  Transmission Date: 20140515
  Serious: Yes (Other)
  Sender: FDA-Public Use
  Company Number: US-BAYER-2013-095018

PATIENT
  Age: 56 Year
  Sex: Female

DRUGS (1)
  1. MAGNEVIST [Suspect]
     Dosage: 20 ML, ONCE
     Route: 042
     Dates: start: 20130805, end: 20130805

REACTIONS (2)
  - Dyspnoea [None]
  - Throat irritation [None]
